FAERS Safety Report 10416645 (Version 2)
Quarter: 2014Q3

REPORT INFORMATION
  Report Type: Report from Study
  Country: US (occurrence: US)
  Receive Date: 20140828
  Receipt Date: 20140903
  Transmission Date: 20150326
  Serious: Yes (Other)
  Sender: FDA-Public Use
  Company Number: US-TEVA-504509USA

PATIENT
  Age: 50 Year
  Sex: Female

DRUGS (1)
  1. COPAXONE [Suspect]
     Active Substance: GLATIRAMER ACETATE
     Indication: MULTIPLE SCLEROSIS
     Route: 065
     Dates: start: 2014

REACTIONS (22)
  - Palpitations [Unknown]
  - Sensory loss [Unknown]
  - Throat tightness [Recovered/Resolved]
  - Myalgia [Not Recovered/Not Resolved]
  - Generalised erythema [Unknown]
  - Burning sensation [Unknown]
  - Eye disorder [Unknown]
  - Headache [Not Recovered/Not Resolved]
  - Chest discomfort [Unknown]
  - Lip oedema [Not Recovered/Not Resolved]
  - Anxiety [Unknown]
  - Hyperhidrosis [Unknown]
  - Chills [Unknown]
  - Feeling abnormal [Unknown]
  - Injection site reaction [Not Recovered/Not Resolved]
  - Hypertension [Unknown]
  - Nausea [Unknown]
  - Facial pain [Not Recovered/Not Resolved]
  - Speech disorder [Unknown]
  - Vomiting [Unknown]
  - Chest pain [Unknown]
  - Flushing [Unknown]

NARRATIVE: CASE EVENT DATE: 20140820
